FAERS Safety Report 5274869-5 (Version None)
Quarter: 2007Q1

REPORT INFORMATION
  Report Type: 
  Country: None (occurrence: None)
  Receive Date: 20061208
  Receipt Date: 20060525
  Transmission Date: 20070707
  Serious: Yes (Hospitalization)
  Sender: FDA-Public Use
  Company Number: 2006UW08793

PATIENT
  Age: 63 Year
  Sex: Male

DRUGS (5)
  1. CRESTOR [Suspect]
     Indication: HYPERLIPIDAEMIA
     Dosage: 20 MG QD PO
     Route: 048
     Dates: start: 20040405, end: 20060401
  2. ACTOS [Concomitant]
  3. GLIPIZIDE [Concomitant]
  4. ALBUTEROL [Concomitant]
  5. LEVAQUIN [Concomitant]

REACTIONS (5)
  - HYPERBILIRUBINAEMIA [None]
  - HYPOXIA [None]
  - PNEUMONIA [None]
  - RHABDOMYOLYSIS [None]
  - THROMBOCYTOPENIA [None]
